FAERS Safety Report 18608736 (Version 2)
Quarter: 2021Q3

REPORT INFORMATION
  Report Type: Report from Study
  Country: RU (occurrence: RU)
  Receive Date: 20201213
  Receipt Date: 20210719
  Transmission Date: 20211014
  Serious: Yes (Other)
  Sender: FDA-Public Use
  Company Number: NVSC2020RU329876

PATIENT
  Age: 82 Year
  Sex: Female

DRUGS (2)
  1. TRAMETINIB [Suspect]
     Active Substance: TRAMETINIB
     Indication: MALIGNANT MELANOMA
     Dosage: 2 MG, QD (PER DAY ON DAILY BASIS)
     Route: 048
     Dates: start: 20180615
  2. DABRAFENIB [Suspect]
     Active Substance: DABRAFENIB
     Indication: MALIGNANT MELANOMA
     Dosage: 300 MG, QD (PER DAY ON DAILY BASIS)
     Route: 048
     Dates: start: 20180615

REACTIONS (7)
  - Metastatic malignant melanoma [Unknown]
  - Malignant melanoma [Unknown]
  - Necrosis [Unknown]
  - Lymphadenopathy [Unknown]
  - Renal cyst [Unknown]
  - Malignant neoplasm progression [Unknown]
  - Nephrolithiasis [Unknown]

NARRATIVE: CASE EVENT DATE: 20180725
